FAERS Safety Report 13441914 (Version 1)
Quarter: 2017Q2

REPORT INFORMATION
  Report Type: Spontaneous
  Country: US (occurrence: US)
  Receive Date: 20170414
  Receipt Date: 20170414
  Transmission Date: 20170830
  Serious: Yes (Other)
  Sender: FDA-Public Use
  Company Number: US-ASTRAZENECA-2017SE38305

PATIENT
  Sex: Female

DRUGS (2)
  1. LINZESS [Concomitant]
     Active Substance: LINACLOTIDE
  2. MOVANTIK [Suspect]
     Active Substance: NALOXEGOL OXALATE
     Route: 048

REACTIONS (3)
  - Hyperhidrosis [Unknown]
  - Mycosis fungoides [Unknown]
  - Back injury [Unknown]
